FAERS Safety Report 6189408-4 (Version None)
Quarter: 2009Q2

REPORT INFORMATION
  Report Type: 
  Country: None (occurrence: None)
  Receive Date: 20090512
  Receipt Date: 20090506
  Transmission Date: 20091009
  Serious: Yes (Hospitalization)
  Sender: FDA-Public Use
  Company Number: 2009SP006867

PATIENT
  Age: 11 Year
  Sex: Female
  Weight: 35.5 kg

DRUGS (1)
  1. NOXAFIL [Suspect]
     Indication: PROPHYLAXIS
     Dosage: ; PO
     Route: 048
     Dates: start: 20090309, end: 20090321

REACTIONS (3)
  - HYPOCALCAEMIA [None]
  - HYPOKALAEMIA [None]
  - HYPOMAGNESAEMIA [None]
